FAERS Safety Report 21663757 (Version 4)
Quarter: 2023Q1

REPORT INFORMATION
  Report Type: Spontaneous
  Country: JP (occurrence: JP)
  Receive Date: 20221130
  Receipt Date: 20230327
  Transmission Date: 20230417
  Serious: Yes (Death, Other)
  Sender: FDA-Public Use
  Company Number: JP-GSKJP-JP2022JPN176152

PATIENT
  Sex: Male

DRUGS (34)
  1. BOTOX [Suspect]
     Active Substance: ONABOTULINUMTOXINA
     Indication: Muscle tightness
     Dosage: 100 UNITS, SINGLE
     Route: 030
     Dates: start: 20120906, end: 20120906
  2. BOTOX [Suspect]
     Active Substance: ONABOTULINUMTOXINA
     Indication: Muscle spasms
     Dosage: 200 UNITS, SINGLE
     Route: 030
     Dates: start: 20130131, end: 20130131
  3. BOTOX [Suspect]
     Active Substance: ONABOTULINUMTOXINA
     Indication: Torticollis
     Dosage: 200 UNITS, SINGLE
     Route: 030
     Dates: start: 20130516, end: 20130516
  4. BOTOX [Suspect]
     Active Substance: ONABOTULINUMTOXINA
     Dosage: 250 UNITS, SINGLE
     Route: 030
     Dates: start: 20140130, end: 20140130
  5. BOTOX [Suspect]
     Active Substance: ONABOTULINUMTOXINA
     Dosage: 245 UNITS, SINGLE
     Route: 030
     Dates: start: 20140508, end: 20140508
  6. BOTOX [Suspect]
     Active Substance: ONABOTULINUMTOXINA
     Dosage: 245 UNITS, SINGLE
     Route: 030
     Dates: start: 20140904, end: 20140904
  7. BOTOX [Suspect]
     Active Substance: ONABOTULINUMTOXINA
     Dosage: 235 UNITS, SINGLE
     Route: 030
     Dates: start: 20150219, end: 20150219
  8. BOTOX [Suspect]
     Active Substance: ONABOTULINUMTOXINA
     Dosage: 205 UNITS, SINGLE
     Route: 030
     Dates: start: 20150618, end: 20150618
  9. BOTOX [Suspect]
     Active Substance: ONABOTULINUMTOXINA
     Dosage: 150 UNITS, SINGLE
     Route: 030
     Dates: start: 20160128, end: 20160128
  10. BOTOX [Suspect]
     Active Substance: ONABOTULINUMTOXINA
     Dosage: 200 UNITS, SINGLE
     Route: 030
     Dates: start: 20160519, end: 20160519
  11. BOTOX [Suspect]
     Active Substance: ONABOTULINUMTOXINA
     Dosage: 245 UNITS, SINGLE
     Route: 030
     Dates: start: 20160901, end: 20160901
  12. BOTOX [Suspect]
     Active Substance: ONABOTULINUMTOXINA
     Dosage: 245 UNITS, SINGLE
     Route: 030
     Dates: start: 20161201, end: 20161201
  13. BOTOX [Suspect]
     Active Substance: ONABOTULINUMTOXINA
     Dosage: 100 UNITS, SINGLE
     Route: 030
     Dates: start: 20170420, end: 20170420
  14. BOTOX [Suspect]
     Active Substance: ONABOTULINUMTOXINA
     Dosage: 190 UNITS, SINGLE
     Route: 030
     Dates: start: 20170803, end: 20170803
  15. BOTOX [Suspect]
     Active Substance: ONABOTULINUMTOXINA
     Dosage: 100 UNITS, SINGLE
     Route: 030
     Dates: start: 20171207, end: 20171207
  16. BOTOX [Suspect]
     Active Substance: ONABOTULINUMTOXINA
     Dosage: 200 UNITS, SINGLE
     Route: 030
     Dates: start: 20180419, end: 20180419
  17. BOTOX [Suspect]
     Active Substance: ONABOTULINUMTOXINA
     Dosage: 100 UNITS, SINGLE
     Route: 030
     Dates: start: 20180802, end: 20180802
  18. BOTOX [Suspect]
     Active Substance: ONABOTULINUMTOXINA
     Dosage: 195 UNITS, SINGLE
     Route: 030
     Dates: start: 20181206, end: 20181206
  19. BOTOX [Suspect]
     Active Substance: ONABOTULINUMTOXINA
     Dosage: 200 UNITS, SINGLE
     Route: 030
     Dates: start: 20190418, end: 20190418
  20. BOTOX [Suspect]
     Active Substance: ONABOTULINUMTOXINA
     Dosage: 200 UNITS, SINGLE
     Route: 030
     Dates: start: 20190801, end: 20190801
  21. BOTOX [Suspect]
     Active Substance: ONABOTULINUMTOXINA
     Dosage: 200 UNITS, SINGLE
     Route: 030
     Dates: start: 20191205, end: 20191205
  22. BOTOX [Suspect]
     Active Substance: ONABOTULINUMTOXINA
     Dosage: 200 UNITS, SINGLE
     Route: 030
     Dates: start: 20200416, end: 20200416
  23. BOTOX [Suspect]
     Active Substance: ONABOTULINUMTOXINA
     Dosage: 290 UNITS, SINGLE
     Route: 030
     Dates: start: 20200806, end: 20200806
  24. BOTOX [Suspect]
     Active Substance: ONABOTULINUMTOXINA
     Dosage: 290 UNITS, SINGLE
     Route: 030
     Dates: start: 20210224, end: 20210224
  25. BOTOX [Suspect]
     Active Substance: ONABOTULINUMTOXINA
     Dosage: 300 UNITS, SINGLE
     Route: 030
     Dates: start: 20210616, end: 20210616
  26. BOTOX [Suspect]
     Active Substance: ONABOTULINUMTOXINA
     Dosage: 265 UNITS, SINGLE
     Route: 030
     Dates: start: 20211208, end: 20211208
  27. CERCINE [Concomitant]
     Active Substance: DIAZEPAM
     Dosage: 15 MG, QD
     Route: 048
  28. DANTRIUM ASTELLAS [Concomitant]
     Dosage: 25 MG, QD
     Route: 048
  29. EPERISONE HYDROCHLORIDE [Concomitant]
     Active Substance: EPERISONE HYDROCHLORIDE
     Dosage: 75 MG, QD
     Route: 048
  30. TEGRETOL [Concomitant]
     Active Substance: CARBAMAZEPINE
     Dosage: 150 MG, QD
     Route: 048
  31. ZONISAMIDE [Concomitant]
     Active Substance: ZONISAMIDE
     Dosage: 150 MG, QD
     Route: 048
  32. VITAMINS NOS [Concomitant]
     Active Substance: VITAMINS
     Dosage: 2 G, QD
     Route: 048
  33. LANSOPRAZOLE [Concomitant]
     Active Substance: LANSOPRAZOLE
     Dosage: 15 MG, QD
  34. BIFIDOBACTERIUM SPP. [Concomitant]
     Active Substance: BIFIDOBACTERIUM SPP.
     Dosage: 3 G, QD
     Route: 048

REACTIONS (6)
  - Ileus [Fatal]
  - Infection [Fatal]
  - Malnutrition [Fatal]
  - Mechanical ileus [Recovering/Resolving]
  - Volvulus of small bowel [Recovering/Resolving]
  - Intestinal perforation [Recovering/Resolving]

NARRATIVE: CASE EVENT DATE: 20201201
